FAERS Safety Report 10081173 (Version 1)
Quarter: 2014Q2

REPORT INFORMATION
  Report Type: Spontaneous
  Country: IT (occurrence: IT)
  Receive Date: 20140416
  Receipt Date: 20140416
  Transmission Date: 20141212
  Serious: Yes (Other)
  Sender: FDA-Public Use
  Company Number: IT-MYLANLABS-2014S1008032

PATIENT
  Age: 62 Year
  Sex: Male

DRUGS (1)
  1. TICLOPIDINE HYDROCHLORIDE [Suspect]
     Indication: PRODUCT USED FOR UNKNOWN INDICATION
     Dosage: 500 MG DAILY
     Route: 048
     Dates: start: 20130909, end: 20130910

REACTIONS (1)
  - Gastric disorder [Recovered/Resolved with Sequelae]
